FAERS Safety Report 10667480 (Version 1)
Quarter: 2014Q4

REPORT INFORMATION
  Report Type: Spontaneous
  Country: US (occurrence: None)
  Receive Date: 20141219
  Receipt Date: 20141219
  Transmission Date: 20150529
  Serious: No
  Sender: FDA-Public Use
  Company Number: None

PATIENT
  Age: 57 Year
  Sex: Male

DRUGS (8)
  1. PROTONIX [Concomitant]
     Active Substance: PANTOPRAZOLE SODIUM
  2. LASIX [Concomitant]
     Active Substance: FUROSEMIDE
  3. SOVALDI [Suspect]
     Active Substance: SOFOSBUVIR
     Indication: HEPATITIS
     Route: 048
     Dates: start: 20140321, end: 201406
  4. VITAMIN C [Concomitant]
     Active Substance: ASCORBIC ACID
  5. OLYSIO [Suspect]
     Active Substance: SIMEPREVIR
     Indication: HEPATITIS
     Route: 048
     Dates: start: 20140321, end: 201406
  6. VITAMIN B12 [Suspect]
     Active Substance: CYANOCOBALAMIN
  7. ALDACTONE [Concomitant]
     Active Substance: SPIRONOLACTONE
  8. MILK THISTLE [Concomitant]
     Active Substance: MILK THISTLE

REACTIONS (1)
  - Fatigue [None]

NARRATIVE: CASE EVENT DATE: 20140321
